FAERS Safety Report 5884121-2 (Version None)
Quarter: 2008Q3

REPORT INFORMATION
  Report Type: 
  Country: None (occurrence: None)
  Receive Date: 20080911
  Receipt Date: 20080904
  Transmission Date: 20090109
  Serious: Yes (Hospitalization, Disabling)
  Sender: FDA-Public Use
  Company Number: 2008AL006046

PATIENT
  Age: 57 Year
  Sex: Male

DRUGS (16)
  1. DIGOXIN [Suspect]
     Indication: CARDIAC DISORDER
     Dosage: 0.25MG, DAILY,  PO
     Route: 048
  2. ALTACE [Concomitant]
  3. GLIMEPIRIDE [Concomitant]
  4. METOPROLOL TARTRATE [Concomitant]
  5. SPIRONOLACTONE [Concomitant]
  6. ASPIRIN [Concomitant]
  7. COMBIVENT [Concomitant]
  8. INSULIN [Concomitant]
  9. VYTORIN [Concomitant]
  10. SURFAK [Concomitant]
  11. CYCLOBENZAPRINE HCL [Concomitant]
  12. COREG [Concomitant]
  13. PLAVIX [Concomitant]
  14. FUROSEMIDE [Concomitant]
  15. OXYCODONE HCL [Concomitant]
  16. FENTANYL [Concomitant]

REACTIONS (8)
  - CHEST PAIN [None]
  - DECREASED ACTIVITY [None]
  - DEPRESSION [None]
  - DIZZINESS [None]
  - DYSPNOEA [None]
  - ELEVATED MOOD [None]
  - NAUSEA [None]
  - VOMITING [None]
